FAERS Safety Report 8024190-7 (Version None)
Quarter: 2012Q1

REPORT INFORMATION
  Report Type: 
  Country: None (occurrence: None)
  Receive Date: 20120103
  Receipt Date: 20111218
  Transmission Date: 20120608
  Serious: No
  Sender: FDA-Public Use
  Company Number: 2011-01330

PATIENT
  Age: 50 Year
  Sex: Female
  Weight: 90.7194 kg

DRUGS (9)
  1. SUBOXONE [Concomitant]
  2. LAMICTAL [Concomitant]
  3. METFORMIN HCL [Concomitant]
  4. ZICAM ULTRA COLD REMEDY RAPIDMELTS [Suspect]
     Indication: NASOPHARYNGITIS
     Dosage: 1 TABLET EVERY 4 HOURS
     Dates: start: 20111217, end: 20111217
  5. ASPIRIN [Concomitant]
  6. TOPAMAX [Concomitant]
  7. SIMVASTATIN [Concomitant]
  8. ZOLOFT [Concomitant]
  9. KLONOPIN [Concomitant]

REACTIONS (2)
  - GLOSSITIS [None]
  - AGEUSIA [None]
